FAERS Safety Report 12356374 (Version 1)
Quarter: 2016Q2

REPORT INFORMATION
  Report Type: Spontaneous
  Country: US (occurrence: US)
  Receive Date: 20160511
  Receipt Date: 20160511
  Transmission Date: 20160815
  Serious: Yes (Hospitalization)
  Sender: FDA-Public Use
  Company Number: US-JNJFOC-20160315932

PATIENT
  Age: 39 Year
  Sex: Female

DRUGS (5)
  1. XARELTO [Suspect]
     Active Substance: RIVAROXABAN
     Indication: THROMBOSIS PROPHYLAXIS
     Dosage: 15.0 MG AND 20 MG
     Route: 048
     Dates: start: 20140620, end: 20140707
  2. XARELTO [Suspect]
     Active Substance: RIVAROXABAN
     Indication: ATRIAL FIBRILLATION
     Dosage: 15.0 MG AND 20 MG
     Route: 048
     Dates: start: 20140620, end: 20140707
  3. XARELTO [Suspect]
     Active Substance: RIVAROXABAN
     Indication: CEREBROVASCULAR ACCIDENT PROPHYLAXIS
     Dosage: 15.0 MG AND 20 MG
     Route: 048
     Dates: start: 20140620, end: 20140707
  4. XARELTO [Suspect]
     Active Substance: RIVAROXABAN
     Indication: THROMBOSIS PROPHYLAXIS
     Dosage: 15.0 MG AND 20 MG
     Route: 048
     Dates: start: 20140620, end: 20140707
  5. XARELTO [Suspect]
     Active Substance: RIVAROXABAN
     Indication: THROMBOSIS PROPHYLAXIS
     Dosage: 15.0 MG AND 20 MG
     Route: 048
     Dates: start: 20140620, end: 20140707

REACTIONS (2)
  - Uterine leiomyoma [Unknown]
  - Menorrhagia [Unknown]

NARRATIVE: CASE EVENT DATE: 20140624
